FAERS Safety Report 18365637 (Version 1)
Quarter: 2020Q4

REPORT INFORMATION
  Report Type: Spontaneous
  Country: US (occurrence: US)
  Receive Date: 20201009
  Receipt Date: 20201009
  Transmission Date: 20210114
  Serious: Yes (Other)
  Sender: FDA-Public Use
  Company Number: None

PATIENT
  Age: 30 Year
  Sex: Male

DRUGS (9)
  1. OPSUMIT [Suspect]
     Active Substance: MACITENTAN
     Indication: PULMONARY ARTERIAL HYPERTENSION
     Route: 048
     Dates: start: 201905
  2. SILDENAFIL. [Concomitant]
     Active Substance: SILDENAFIL
  3. NORCO [Concomitant]
     Active Substance: ACETAMINOPHEN\HYDROCODONE BITARTRATE
  4. METOLAZONE. [Concomitant]
     Active Substance: METOLAZONE
  5. BUMETANIDE. [Concomitant]
     Active Substance: BUMETANIDE
  6. AMIDARONE [Concomitant]
     Active Substance: AMIODARONE
  7. K-TAB [Concomitant]
     Active Substance: POTASSIUM CHLORIDE
  8. PRADAXA [Concomitant]
     Active Substance: DABIGATRAN ETEXILATE MESYLATE
  9. CYCLOBENZAPRINE. [Concomitant]
     Active Substance: CYCLOBENZAPRINE

REACTIONS (3)
  - Limb injury [None]
  - Hypokalaemia [None]
  - Atrial fibrillation [None]

NARRATIVE: CASE EVENT DATE: 20200908
